FAERS Safety Report 21480678 (Version 1)
Quarter: 2022Q4

REPORT INFORMATION
  Report Type: Spontaneous
  Country: AU (occurrence: AU)
  Receive Date: 20221019
  Receipt Date: 20221019
  Transmission Date: 20230113
  Serious: Yes (Other)
  Sender: FDA-Public Use
  Company Number: AU-GE HEALTHCARE-2022CSU007432

PATIENT
  Age: 76 Year
  Sex: Female
  Weight: 77 kg

DRUGS (2)
  1. OMNIPAQUE [Suspect]
     Active Substance: IOHEXOL
     Indication: Angiogram
     Dosage: 95 ML, SINGLE
     Route: 042
     Dates: start: 20221017, end: 20221017
  2. OMNIPAQUE [Suspect]
     Active Substance: IOHEXOL
     Indication: Dyspnoea

REACTIONS (4)
  - Sneezing [Unknown]
  - Lacrimation increased [Unknown]
  - Throat irritation [Unknown]
  - Ocular hyperaemia [Unknown]

NARRATIVE: CASE EVENT DATE: 20221017
